FAERS Safety Report 18468249 (Version 1)
Quarter: 2020Q4

REPORT INFORMATION
  Report Type: Spontaneous
  Country: GB (occurrence: GB)
  Receive Date: 20201105
  Receipt Date: 20201105
  Transmission Date: 20210114
  Serious: Yes (Other)
  Sender: FDA-Public Use
  Company Number: GB-TEVA-2020-GB-1844375

PATIENT
  Age: 13 Year
  Sex: Male
  Weight: 35.4 kg

DRUGS (4)
  1. RISPERIDONE. [Suspect]
     Active Substance: RISPERIDONE
     Indication: ANXIETY
     Dosage: UNIT DOSE 0.5MG
     Route: 048
     Dates: start: 20200929, end: 20201002
  2. SERTRALINE [Concomitant]
     Active Substance: SERTRALINE HYDROCHLORIDE
     Dosage: UNIT DOSE 75MG
  3. PHENERGAN [Concomitant]
     Active Substance: PROMETHAZINE HYDROCHLORIDE
     Dosage: 10 MILLIGRAM DAILY; AT NIGHT
  4. MELATONIN [Concomitant]
     Active Substance: MELATONIN
     Dosage: 6 MILLIGRAM DAILY; AT NIGHT

REACTIONS (12)
  - Dysarthria [Unknown]
  - Slow speech [Unknown]
  - Dyskinesia [Recovered/Resolved]
  - Extrapyramidal disorder [Recovered/Resolved]
  - Hypersomnia [Unknown]
  - Muscular weakness [Unknown]
  - Pain [Unknown]
  - Dystonia [Recovered/Resolved]
  - Gaze palsy [Unknown]
  - Somnolence [Unknown]
  - Drooling [Unknown]
  - Musculoskeletal stiffness [Unknown]

NARRATIVE: CASE EVENT DATE: 20200930
